FAERS Safety Report 6928618-2 (Version None)
Quarter: 2010Q3

REPORT INFORMATION
  Report Type: 
  Country: None (occurrence: None)
  Receive Date: 20100817
  Receipt Date: 20100806
  Transmission Date: 20110219
  Serious: Yes (Life-Threatening, Hospitalization)
  Sender: FDA-Public Use
  Company Number: A0798993A

PATIENT
  Age: 57 Year
  Sex: Male
  Weight: 100.9 kg

DRUGS (11)
  1. AVANDAMET [Suspect]
     Indication: DIABETES MELLITUS
     Route: 048
     Dates: end: 20080101
  2. AVANDIA [Suspect]
     Indication: DIABETES MELLITUS
     Route: 048
     Dates: end: 20070101
  3. ELAVIL [Concomitant]
  4. INSULIN [Concomitant]
  5. GLUCOPHAGE [Concomitant]
  6. NEXIUM [Concomitant]
  7. KDUR [Concomitant]
  8. LESCOL [Concomitant]
  9. LASIX [Concomitant]
  10. ATENOLOL [Concomitant]
  11. COZAAR [Concomitant]

REACTIONS (6)
  - ANGIOPLASTY [None]
  - APPARENT DEATH [None]
  - BRADYCARDIA [None]
  - CARDIO-RESPIRATORY ARREST [None]
  - CORONARY ARTERY STENOSIS [None]
  - PROCEDURAL COMPLICATION [None]
